FAERS Safety Report 11886610 (Version 1)
Quarter: 2016Q1

REPORT INFORMATION
  Report Type: Spontaneous
  Country: US (occurrence: US)
  Receive Date: 20160104
  Receipt Date: 20160104
  Transmission Date: 20160526
  Serious: No
  Sender: FDA-Public Use
  Company Number: US-PFIZER INC-2015469290

PATIENT
  Sex: Male

DRUGS (2)
  1. ADVIL PM [Suspect]
     Active Substance: DIPHENHYDRAMINE CITRATE\IBUPROFEN
     Dosage: UNK, DAILY
     Dates: start: 20151222
  2. MELATONIN [Suspect]
     Active Substance: MELATONIN
     Dosage: 1 DF, UNK
     Dates: start: 20151223

REACTIONS (3)
  - Dry throat [Not Recovered/Not Resolved]
  - Insomnia [Not Recovered/Not Resolved]
  - Dysphagia [Not Recovered/Not Resolved]

NARRATIVE: CASE EVENT DATE: 201512
